FAERS Safety Report 9542742 (Version 2)
Quarter: 2013Q4

REPORT INFORMATION
  Report Type: Spontaneous
  Country: FR (occurrence: FR)
  Receive Date: 20130923
  Receipt Date: 20131021
  Transmission Date: 20140711
  Serious: Yes (Hospitalization)
  Sender: FDA-Public Use
  Company Number: FR-PFIZER INC-2013268437

PATIENT
  Age: 22 Year
  Sex: Female

DRUGS (7)
  1. TRIATEC [Suspect]
     Dosage: 1 DF, 1X/DAY
     Route: 048
     Dates: start: 20130712
  2. TRIATEC [Suspect]
     Dosage: UNK
     Route: 048
     Dates: start: 20130719, end: 20130724
  3. BACTRIM [Suspect]
     Indication: SYSTEMIC LUPUS ERYTHEMATOSUS
     Dosage: 1 DF, 1X/DAY
     Route: 048
     Dates: start: 20130627, end: 20130723
  4. CORTANCYL [Concomitant]
     Indication: LUPUS NEPHRITIS
     Dosage: UNK
     Dates: start: 201306
  5. ENDOXAN [Concomitant]
     Indication: LUPUS NEPHRITIS
     Dosage: UNK
     Dates: start: 20130627
  6. PLAQUENIL [Concomitant]
     Indication: LUPUS NEPHRITIS
     Dosage: UNK
     Dates: start: 201306
  7. INEXIUM [Concomitant]
     Indication: LUPUS NEPHRITIS
     Dosage: UNK
     Dates: start: 201306

REACTIONS (2)
  - Rash maculo-papular [Recovered/Resolved]
  - Lymphopenia [Recovered/Resolved]
